FAERS Safety Report 5246517-1 (Version None)
Quarter: 2007Q1

REPORT INFORMATION
  Report Type: 
  Country: None (occurrence: None)
  Receive Date: 20070226
  Receipt Date: 20060421
  Transmission Date: 20070707
  Serious: No
  Sender: FDA-Public Use
  Company Number: US-GLAXOSMITHKLINE-A0602819A

PATIENT

DRUGS (2)
  1. ALKERAN [Suspect]
     Dosage: 2MG UNKNOWN
     Route: 065
  2. NO CONCURRENT MEDICATION [Concomitant]

REACTIONS (1)
  - MEDICATION ERROR [None]
